FAERS Safety Report 10149840 (Version 1)
Quarter: 2014Q2

REPORT INFORMATION
  Report Type: Spontaneous
  Country: US (occurrence: None)
  Receive Date: 20140501
  Receipt Date: 20140501
  Transmission Date: 20141212
  Serious: Yes (Other)
  Sender: FDA-Public Use
  Company Number: None

PATIENT
  Age: 11 Year
  Sex: Female
  Weight: 35.38 kg

DRUGS (10)
  1. VYVANSE [Suspect]
     Indication: ATTENTION DEFICIT/HYPERACTIVITY DISORDER
     Dosage: 1 DAILY BY MOUTH
     Route: 048
     Dates: start: 20130814, end: 20140403
  2. VYVANSE [Suspect]
     Indication: ATTENTION DEFICIT/HYPERACTIVITY DISORDER
     Dosage: 1 DAILY BY MOUTH
     Route: 048
     Dates: start: 20130814, end: 20140403
  3. METHOTREXATE [Concomitant]
  4. HYDROXYCHLOROQUINE [Concomitant]
  5. DICLOFENAC SODIUM [Concomitant]
  6. INDOMETHACIN [Concomitant]
  7. FOLIC ACID [Concomitant]
  8. ADVIL [Concomitant]
  9. CLARITIN [Concomitant]
  10. BENADRYL [Concomitant]

REACTIONS (4)
  - Pain in extremity [None]
  - Pain in extremity [None]
  - Skin discolouration [None]
  - Skin disorder [None]
